FAERS Safety Report 7230496-1 (Version None)
Quarter: 2011Q1

REPORT INFORMATION
  Report Type: 
  Country: None (occurrence: None)
  Receive Date: 20110117
  Receipt Date: 20110111
  Transmission Date: 20110831
  Serious: Yes (Death, Other)
  Sender: FDA-Public Use
  Company Number: PHHY2011US00819

PATIENT

DRUGS (9)
  1. TEGRETOL [Concomitant]
     Dosage: 400 UNK, UNK
  2. LITHIUM [Concomitant]
     Dosage: 600 UNK, BID
  3. BUSPAR [Concomitant]
  4. NORVASC [Concomitant]
     Dosage: 2.5 MG, UNK
  5. LOPID [Concomitant]
  6. PROZAC [Concomitant]
     Dosage: 20 MG, UNK
  7. DITROPAN [Concomitant]
  8. CLOZARIL [Suspect]
     Dosage: 400 MG, UNK
  9. MELLARIL [Concomitant]
     Dosage: 25 MG, QD

REACTIONS (9)
  - CORONARY ARTERY OCCLUSION [None]
  - AGONAL RHYTHM [None]
  - DYSPNOEA [None]
  - PULSE ABSENT [None]
  - CIRCULATORY COLLAPSE [None]
  - SKIN DISCOLOURATION [None]
  - CARDIAC ARREST [None]
  - ACCIDENTAL EXPOSURE [None]
  - MODERATE MENTAL RETARDATION [None]
